FAERS Safety Report 10173081 (Version 1)
Quarter: 2014Q2

REPORT INFORMATION
  Report Type: Spontaneous
  Country: US (occurrence: None)
  Receive Date: 20140415
  Receipt Date: 20140415
  Transmission Date: 20141212
  Serious: Yes (Other)
  Sender: FDA-Public Use
  Company Number: ALL1-2013-06585

PATIENT
  Age: 22 Year
  Sex: Male
  Weight: 77.1 kg

DRUGS (4)
  1. VYVANSE (LISDEXAMFETAMINE DIMESYLATE) CAPSULE [Suspect]
     Indication: ATTENTION DEFICIT/HYPERACTIVITY DISORDER
     Route: 048
     Dates: end: 20130805
  2. ABILIFY (ARIPIPRAZOLE) [Suspect]
     Indication: BIPOLAR DISORDER
     Dates: start: 2009, end: 20130805
  3. ABILIFY (ARIPIPRAZOLE) [Suspect]
     Indication: SCHIZOPHRENIA
     Dates: start: 2009, end: 20130805
  4. CHANTIX (VARENICLINE TARTRATE) [Suspect]
     Indication: SMOKING CESSATION THERAPY
     Dates: start: 20130729, end: 201308

REACTIONS (7)
  - Psychotic disorder [None]
  - Disturbance in social behaviour [None]
  - Performance status decreased [None]
  - Agitation [None]
  - Insomnia [None]
  - Irritability [None]
  - Aggression [None]
